FAERS Safety Report 6068145-0 (Version None)
Quarter: 2009Q1

REPORT INFORMATION
  Report Type: 
  Country: None (occurrence: None)
  Receive Date: 20090206
  Receipt Date: 20090127
  Transmission Date: 20090719
  Serious: Yes (Death, Life-Threatening, Hospitalization)
  Sender: FDA-Public Use
  Company Number: DE-ABBOTT-08P-062-0453976-00

PATIENT
  Sex: Female

DRUGS (9)
  1. HUMIRA [Suspect]
     Indication: RHEUMATOID ARTHRITIS
     Route: 058
     Dates: start: 20060201, end: 20061001
  2. RITUXIMAB [Suspect]
     Indication: DRUG USE FOR UNKNOWN INDICATION
     Route: 042
     Dates: start: 20071015, end: 20071101
  3. RITUXIMAB [Suspect]
     Dates: start: 20071102, end: 20071102
  4. ETANERCEPT [Suspect]
     Indication: RHEUMATOID ARTHRITIS
     Route: 058
     Dates: start: 20061001, end: 20071001
  5. METHOTREXATE [Suspect]
     Indication: RHEUMATOID ARTHRITIS
     Dates: start: 20030701, end: 20060501
  6. METHOTREXATE [Suspect]
     Dates: start: 20070401, end: 20071001
  7. METHOTREXATE [Suspect]
     Dates: start: 20030101, end: 20040101
  8. METHOTREXATE [Suspect]
     Dates: start: 20040101
  9. DECORTIN [Concomitant]
     Indication: RHEUMATOID ARTHRITIS
     Route: 048
     Dates: start: 20000101, end: 20080101

REACTIONS (2)
  - FUNGAL SEPSIS [None]
  - MULTI-ORGAN FAILURE [None]
